FAERS Safety Report 4286508-0 (Version None)
Quarter: 2004Q1

REPORT INFORMATION
  Report Type: 
  Country: None (occurrence: None)
  Receive Date: 20040204
  Receipt Date: 20040127
  Transmission Date: 20041129
  Serious: Yes (Disabling, Other)
  Sender: FDA-Public Use
  Company Number: 200411800BWH

PATIENT
  Age: 52 Year
  Sex: Male
  Weight: 120.2032 kg

DRUGS (2)
  1. AVELOX [Suspect]
     Indication: BRONCHITIS
     Dosage: 400 MG, TOTAL DAILY, ORAL
     Route: 048
     Dates: start: 20030612, end: 20030615
  2. GLUCOVANCE [Concomitant]

REACTIONS (5)
  - DIABETES MELLITUS INADEQUATE CONTROL [None]
  - DIALYSIS [None]
  - HAEMATURIA [None]
  - RENAL FAILURE [None]
  - URINARY RETENTION [None]
